FAERS Safety Report 5040649-9 (Version None)
Quarter: 2006Q2

REPORT INFORMATION
  Report Type: 
  Country: None (occurrence: None)
  Receive Date: 20060630
  Receipt Date: 20060630
  Transmission Date: 20061013
  Serious: Yes (Life-Threatening)
  Sender: FDA-Public Use
  Company Number: None

PATIENT
  Age: 16 Year
  Sex: Male
  Weight: 86.1834 kg

DRUGS (4)
  1. ZOLOFT, PFIZER 25 MG [Suspect]
     Indication: GENERALISED ANXIETY DISORDER
     Dosage: SEE IMAGE
     Route: 048
     Dates: start: 20060626
  2. ZOLOFT, PFIZER 25 MG [Suspect]
     Indication: PARANOIA
     Dosage: SEE IMAGE
     Route: 048
     Dates: start: 20060626
  3. ZOLOFT, PFIZER 25 MG [Suspect]
     Indication: GENERALISED ANXIETY DISORDER
     Dosage: SEE IMAGE
     Route: 048
     Dates: start: 20060627
  4. ZOLOFT, PFIZER 25 MG [Suspect]
     Indication: PARANOIA
     Dosage: SEE IMAGE
     Route: 048
     Dates: start: 20060627

REACTIONS (4)
  - HALLUCINATION, AUDITORY [None]
  - INSOMNIA [None]
  - MANIA [None]
  - SUICIDAL IDEATION [None]
